FAERS Safety Report 8552785-0 (Version None)
Quarter: 2012Q3

REPORT INFORMATION
  Report Type: 
  Country: None (occurrence: None)
  Receive Date: 20120731
  Receipt Date: 20120725
  Transmission Date: 20120928
  Serious: Yes (Other)
  Sender: FDA-Public Use
  Company Number: PHHY2012BR065241

PATIENT
  Sex: Female

DRUGS (1)
  1. FORMOTEROL FUMARATE [Suspect]
     Indication: BRONCHITIS
     Dosage: 12/400 MCG  ONCE A DAILY

REACTIONS (4)
  - EMPHYSEMA [None]
  - DYSPNOEA EXERTIONAL [None]
  - CHEST PAIN [None]
  - DIAPHRAGMATIC DISORDER [None]
